FAERS Safety Report 6677553-6 (Version None)
Quarter: 2010Q2

REPORT INFORMATION
  Report Type: 
  Country: None (occurrence: None)
  Receive Date: 20100412
  Receipt Date: 20100129
  Transmission Date: 20101027
  Serious: Yes (Hospitalization)
  Sender: FDA-Public Use
  Company Number: US-ALEXION-A201000012

PATIENT
  Sex: Female

DRUGS (9)
  1. SOLIRIS [Suspect]
     Indication: PAROXYSMAL NOCTURNAL HAEMOGLOBINURIA
     Dosage: 600 MG
     Route: 042
     Dates: start: 20070628
  2. SOLIRIS [Suspect]
     Dosage: 900 MG, Q2W
     Route: 042
     Dates: end: 20091117
  3. SOLIRIS [Suspect]
     Dosage: 600 MG, UNK
     Route: 042
     Dates: start: 20100119
  4. OXYCONTIN [Concomitant]
     Dosage: UNK
     Route: 048
  5. FOLATE [Concomitant]
     Dosage: UNK
     Route: 048
  6. CALCIUM [Concomitant]
     Dosage: UNK
  7. VITAMIN A [Concomitant]
     Dosage: UNK
  8. PREDNISOLONE [Concomitant]
     Dosage: 60 MG, QD
     Route: 048
  9. METHOTREXATE [Concomitant]
     Dosage: 1X/WEEK

REACTIONS (1)
  - POLYARTHRITIS [None]
